FAERS Safety Report 8342697-X (Version None)
Quarter: 2012Q2

REPORT INFORMATION
  Report Type: 
  Country: None (occurrence: None)
  Receive Date: 20120502
  Receipt Date: 20120411
  Transmission Date: 20120825
  Serious: Yes (Other)
  Sender: FDA-Public Use
  Company Number: GB-023379

PATIENT
  Age: 80 Year
  Sex: Female

DRUGS (4)
  1. CO-TRIMOXAZOLE (SULFAMETHOXAZOLE AND TRIMETHOPRIM) [Concomitant]
  2. LEUKERAN [Suspect]
     Indication: CHRONIC LYMPHOCYTIC LEUKAEMIA
     Dosage: 16 MILLIGRAM, ORAL
     Route: 048
     Dates: start: 20110110
  3. STUDY MEDICATION (OTHER) [Suspect]
     Indication: CHRONIC LYMPHOCYTIC LEUKAEMIA
     Dosage: 1000 MILLIGRAM, 1 ONCE, INTRAVENOUS (NOT OTHERWISE SPECIFIED)
     Route: 042
     Dates: start: 20110110, end: 20110705
  4. ALBUTEROL SULFATE [Concomitant]

REACTIONS (2)
  - PNEUMONITIS [None]
  - VIRAL UPPER RESPIRATORY TRACT INFECTION [None]
